FAERS Safety Report 14980013 (Version 2)
Quarter: 2019Q2

REPORT INFORMATION
  Report Type: Spontaneous
  Country: US (occurrence: US)
  Receive Date: 20180606
  Receipt Date: 20190605
  Transmission Date: 20190711
  Serious: No
  Sender: FDA-Public Use
  Company Number: US-ALLERGAN-1822339US

PATIENT
  Age: 44 Year
  Sex: Female

DRUGS (2)
  1. CRINONE [Suspect]
     Active Substance: PROGESTERONE
     Indication: IN VITRO FERTILISATION
  2. CRINONE [Suspect]
     Active Substance: PROGESTERONE
     Indication: PREGNANCY
     Dosage: UNK
     Route: 065
     Dates: start: 20180307, end: 20180405

REACTIONS (3)
  - Product quality issue [Unknown]
  - Pregnancy [Unknown]
  - Inappropriate schedule of product administration [Unknown]

NARRATIVE: CASE EVENT DATE: 20180406
